FAERS Safety Report 24846816 (Version 4)
Quarter: 2025Q1

REPORT INFORMATION
  Report Type: Spontaneous
  Country: US (occurrence: US)
  Receive Date: 20250115
  Receipt Date: 20250225
  Transmission Date: 20250408
  Serious: Yes (Other)
  Sender: NOVARTIS
  Company Number: US-002147023-NVSC2025US005432

PATIENT
  Age: 38 Year
  Sex: Male

DRUGS (1)
  1. TEGRETOL [Suspect]
     Active Substance: CARBAMAZEPINE
     Indication: Seizure
     Route: 065

REACTIONS (2)
  - Seizure [Unknown]
  - Aura [Unknown]

NARRATIVE: CASE EVENT DATE: 20230701
